FAERS Safety Report 19931881 (Version 2)
Quarter: 2021Q4

REPORT INFORMATION
  Report Type: Spontaneous
  Country: US (occurrence: US)
  Receive Date: 20211007
  Receipt Date: 20211022
  Transmission Date: 20220304
  Serious: No
  Sender: FDA-Public Use
  Company Number: US-ORGANON-O2110USA000388

PATIENT
  Sex: Female

DRUGS (3)
  1. ASMANEX [Suspect]
     Active Substance: MOMETASONE FUROATE
     Dosage: ONCE DAILY IN EVENING
  2. ASMANEX [Suspect]
     Active Substance: MOMETASONE FUROATE
     Dosage: UNK
  3. ASMANEX [Suspect]
     Active Substance: MOMETASONE FUROATE
     Dosage: UNK

REACTIONS (6)
  - Device malfunction [Unknown]
  - Poor quality device used [Unknown]
  - Product dose omission issue [Unknown]
  - Device malfunction [Unknown]
  - Poor quality device used [Unknown]
  - No adverse event [Unknown]

NARRATIVE: CASE EVENT DATE: 20210101
